FAERS Safety Report 8773185 (Version 1)
Quarter: 2012Q4

REPORT INFORMATION
  Report Type: 
  Country: US (occurrence: US)
  Receive Date: 20120907
  Receipt Date: 20120907
  Transmission Date: 20130627
  Serious: Yes (Death)
  Sender: FDA-Public Use
  Company Number: PHHY2012US077740

PATIENT
  Sex: Male

DRUGS (1)
  1. BUFFERIN [Suspect]
     Indication: PAIN
     Route: 048

REACTIONS (2)
  - Myocardial infarction [Fatal]
  - Epigastric discomfort [Unknown]
